FAERS Safety Report 17564740 (Version 1)
Quarter: 2020Q1

REPORT INFORMATION
  Report Type: Report from Study
  Country: JP (occurrence: JP)
  Receive Date: 20200320
  Receipt Date: 20200320
  Transmission Date: 20200409
  Serious: Yes (Other)
  Sender: FDA-Public Use
  Company Number: JP-ROCHE-2566438

PATIENT

DRUGS (1)
  1. PIRFENIDONE. [Suspect]
     Active Substance: PIRFENIDONE
     Indication: IDIOPATHIC PULMONARY FIBROSIS
     Route: 065

REACTIONS (6)
  - Nausea [Unknown]
  - Dermatitis acneiform [Unknown]
  - Pruritus [Unknown]
  - Alanine aminotransferase increased [Unknown]
  - Dizziness [Unknown]
  - Gastric ulcer [Unknown]
